FAERS Safety Report 12343043 (Version 1)
Quarter: 2016Q2

REPORT INFORMATION
  Report Type: Spontaneous
  Country: US (occurrence: US)
  Receive Date: 20160506
  Receipt Date: 20160506
  Transmission Date: 20160815
  Serious: No
  Sender: FDA-Public Use
  Company Number: US-ELI_LILLY_AND_COMPANY-US201605000269

PATIENT
  Sex: Female

DRUGS (2)
  1. HUMULIN N [Suspect]
     Active Substance: INSULIN HUMAN
     Indication: DIABETES MELLITUS
     Dosage: UNK, UNKNOWN
     Route: 065
  2. NOVOLOG [Concomitant]
     Active Substance: INSULIN ASPART
     Indication: PRODUCT USED FOR UNKNOWN INDICATION
     Dosage: UNK, UNKNOWN
     Route: 065

REACTIONS (9)
  - Skin sensitisation [Unknown]
  - Urinary tract infection [Unknown]
  - Abdominal distension [Unknown]
  - Weight increased [Unknown]
  - Blood glucose increased [Unknown]
  - Rash pruritic [Unknown]
  - Rash [Unknown]
  - Drug hypersensitivity [Unknown]
  - Fungal infection [Unknown]

NARRATIVE: CASE EVENT DATE: 2015
